FAERS Safety Report 10578122 (Version 2)
Quarter: 2014Q4

REPORT INFORMATION
  Report Type: Spontaneous
  Country: US (occurrence: US)
  Receive Date: 20141112
  Receipt Date: 20141209
  Transmission Date: 20150529
  Serious: Yes (Hospitalization, Other)
  Sender: FDA-Public Use
  Company Number: US-AMGEN INC.-USASP2014086836

PATIENT
  Age: 58 Year
  Sex: Female

DRUGS (11)
  1. VICODIN ES [Concomitant]
     Active Substance: ACETAMINOPHEN\HYDROCODONE BITARTRATE
     Dosage: TWICE A DAY WHEN NECESSARY
  2. APAP [Concomitant]
     Active Substance: ACETAMINOPHEN
     Dosage: 325 MG TWICE A DAY WHEN NECESSARY
  3. FERROUS SULFATE [Concomitant]
     Active Substance: FERROUS SULFATE\FERROUS SULFATE, DRIED
     Dosage: UNK
  4. HYDROCODONE                        /00060002/ [Concomitant]
     Active Substance: HYDROCODONE
     Dosage: 7.5 MG
  5. NEXIUM [Concomitant]
     Active Substance: ESOMEPRAZOLE MAGNESIUM
     Dosage: 20 MG, QD
     Route: 048
  6. CLINDAMYCIN                        /00166003/ [Concomitant]
     Dosage: UNK
  7. ACCUPRIL [Concomitant]
     Active Substance: QUINAPRIL HYDROCHLORIDE
     Dosage: UNK
  8. CELEBREX [Concomitant]
     Active Substance: CELECOXIB
     Dosage: 200 MG, QD
     Route: 048
  9. ENBREL [Suspect]
     Active Substance: ETANERCEPT
     Indication: RHEUMATOID ARTHRITIS
     Dosage: 50 MG, QWK
     Route: 058
     Dates: start: 2010
  10. LEFLUNOMIDE. [Concomitant]
     Active Substance: LEFLUNOMIDE
     Dosage: 20 MG, QD
     Route: 048
  11. HIBICLENS [Concomitant]
     Active Substance: CHLORHEXIDINE GLUCONATE
     Dosage: UNK

REACTIONS (15)
  - Periorbital cellulitis [Recovered/Resolved]
  - Weight bearing difficulty [Unknown]
  - Stress [Unknown]
  - Nausea [Unknown]
  - Dry mouth [Unknown]
  - Osteoarthritis [Unknown]
  - Cellulitis [Recovered/Resolved]
  - Sleep disorder due to general medical condition, insomnia type [Unknown]
  - Fall [Unknown]
  - Peptic ulcer [Recovered/Resolved]
  - Weight decreased [Unknown]
  - Rheumatoid arthritis [Unknown]
  - Dry eye [Unknown]
  - Gastric ulcer [Recovered/Resolved]
  - Hypocalcaemia [Unknown]

NARRATIVE: CASE EVENT DATE: 201408
